FAERS Safety Report 9007463 (Version 2)
Quarter: 2013Q1

REPORT INFORMATION
  Report Type: Spontaneous
  Country: NL (occurrence: NL)
  Receive Date: 20130110
  Receipt Date: 20130118
  Transmission Date: 20140127
  Serious: Yes (Hospitalization)
  Sender: FDA-Public Use
  Company Number: NL-ABBOTT-13P-114-1032887-00

PATIENT
  Sex: Female
  Weight: 66.9 kg

DRUGS (5)
  1. HUMIRA [Suspect]
     Indication: JUVENILE IDIOPATHIC ARTHRITIS
     Route: 058
  2. PENTASA [Concomitant]
     Indication: COLITIS MICROSCOPIC
     Route: 048
     Dates: start: 20101028
  3. BECLOMETASONE W/MESALAZINE [Concomitant]
     Indication: COLITIS MICROSCOPIC
     Dosage: 3MG/1G/1 TIME DAILY
     Route: 054
     Dates: start: 20101208
  4. DICLOFENAC [Concomitant]
     Indication: JUVENILE IDIOPATHIC ARTHRITIS
     Route: 048
     Dates: start: 20070809
  5. OMEPRAZOL [Concomitant]
     Indication: ANTIINFLAMMATORY THERAPY
     Route: 048
     Dates: start: 20070809

REACTIONS (2)
  - Colitis [Recovering/Resolving]
  - Drug ineffective [Recovering/Resolving]
